FAERS Safety Report 21298374 (Version 2)
Quarter: 2022Q4

REPORT INFORMATION
  Report Type: Spontaneous
  Country: NG (occurrence: NG)
  Receive Date: 20220906
  Receipt Date: 20221011
  Transmission Date: 20230113
  Serious: Yes (Other)
  Sender: FDA-Public Use
  Company Number: NG-NOVARTISPH-NVSC2022NG198604

PATIENT
  Age: 46 Year
  Sex: Female

DRUGS (1)
  1. MAXITROL [Suspect]
     Active Substance: DEXAMETHASONE\NEOMYCIN SULFATE\POLYMYXIN B SULFATE
     Indication: Chorioretinitis
     Dosage: 1 DRP, OTHER (A DROP EVERY THREE HOURS LEFT EYE)
     Route: 047
     Dates: start: 20220816, end: 20220830

REACTIONS (2)
  - Punctate keratitis [Not Recovered/Not Resolved]
  - Vision blurred [Not Recovered/Not Resolved]

NARRATIVE: CASE EVENT DATE: 20220816
